FAERS Safety Report 22129869 (Version 1)
Quarter: 2023Q1

REPORT INFORMATION
  Report Type: Spontaneous
  Country: US (occurrence: None)
  Receive Date: 20230322
  Receipt Date: 20230322
  Transmission Date: 20230417
  Serious: Yes (Other)
  Sender: FDA-Public Use
  Company Number: None

PATIENT
  Age: 66 Year
  Sex: Female
  Weight: 87.75 kg

DRUGS (19)
  1. CAPLYTA [Suspect]
     Active Substance: LUMATEPERONE
     Indication: Bipolar disorder
     Dosage: FREQUENCY : DAILY;?
     Route: 048
  2. DEVICE [Concomitant]
     Active Substance: DEVICE
  3. CYMBALTA [Concomitant]
     Active Substance: DULOXETINE HYDROCHLORIDE
  4. METFORMIN [Concomitant]
     Active Substance: METFORMIN HYDROCHLORIDE
  5. OZEMPIC [Concomitant]
     Active Substance: SEMAGLUTIDE
  6. LAMOTRIGINE [Concomitant]
     Active Substance: LAMOTRIGINE
  7. XANAX [Concomitant]
     Active Substance: ALPRAZOLAM
  8. AMBIEN [Concomitant]
     Active Substance: ZOLPIDEM TARTRATE
  9. ATORVASTATIN [Concomitant]
     Active Substance: ATORVASTATIN
  10. SYNTHROID [Concomitant]
     Active Substance: LEVOTHYROXINE SODIUM
  11. GABAPENTIN [Concomitant]
     Active Substance: GABAPENTIN
  12. B12 injections [Concomitant]
  13. ASPIRIN [Concomitant]
     Active Substance: ASPIRIN
  14. VITAMINS [Concomitant]
     Active Substance: VITAMINS
  15. HERBALS\TURMERIC [Concomitant]
     Active Substance: HERBALS\TURMERIC
  16. Multi B vitamin [Concomitant]
  17. Omega vitamins [Concomitant]
  18. VITAMIN D3 [Concomitant]
     Active Substance: CHOLECALCIFEROL
  19. VITAMIN E [Concomitant]
     Active Substance: .ALPHA.-TOCOPHEROL

REACTIONS (14)
  - Feeling drunk [None]
  - Dysphagia [None]
  - Dry mouth [None]
  - Impaired driving ability [None]
  - Dizziness [None]
  - Asthenia [None]
  - Loss of personal independence in daily activities [None]
  - Loss of consciousness [None]
  - Fall [None]
  - Blood pressure decreased [None]
  - Somnolence [None]
  - Fear [None]
  - Gait disturbance [None]
  - Feeling abnormal [None]

NARRATIVE: CASE EVENT DATE: 20230321
